FAERS Safety Report 7190657-7 (Version None)
Quarter: 2010Q4

REPORT INFORMATION
  Report Type: 
  Country: None (occurrence: None)
  Receive Date: 20101221
  Receipt Date: 20101221
  Transmission Date: 20110411
  Serious: No
  Sender: FDA-Public Use
  Company Number: None

PATIENT
  Age: 56 Year
  Sex: Male
  Weight: 69.3 kg

DRUGS (1)
  1. HEPARIN [Suspect]

REACTIONS (1)
  - DRUG INEFFECTIVE [None]
